FAERS Safety Report 15744380 (Version 1)
Quarter: 2018Q4

REPORT INFORMATION
  Report Type: Spontaneous
  Country: NL (occurrence: NL)
  Receive Date: 20181220
  Receipt Date: 20181220
  Transmission Date: 20190205
  Serious: Yes (Other)
  Sender: FDA-Public Use
  Company Number: NL-TEVA-2018-NL-989508

PATIENT
  Age: 37 Year
  Sex: Female
  Weight: 57 kg

DRUGS (3)
  1. AMOXICILLINE [Concomitant]
     Active Substance: AMOXICILLIN
  2. STEDIRIL 30 [Concomitant]
  3. METRONIDAZOL TABLET, 500 MG (MILLIGRAM) [Suspect]
     Active Substance: METRONIDAZOLE
     Indication: PERIODONTITIS
     Dates: start: 20181110, end: 20181114

REACTIONS (5)
  - Pyrexia [Recovering/Resolving]
  - Abdominal discomfort [Recovering/Resolving]
  - Vomiting [Recovering/Resolving]
  - Fatigue [Recovering/Resolving]
  - Haematochezia [Recovering/Resolving]

NARRATIVE: CASE EVENT DATE: 20181113
